FAERS Safety Report 13871022 (Version 1)
Quarter: 2017Q3

REPORT INFORMATION
  Report Type: Spontaneous
  Country: US (occurrence: None)
  Receive Date: 20170814
  Receipt Date: 20170814
  Transmission Date: 20171127
  Serious: Yes (Hospitalization, Other)
  Sender: FDA-Public Use
  Company Number: None

PATIENT
  Age: 27 Year
  Sex: Female
  Weight: 59.87 kg

DRUGS (2)
  1. ESSENTIAL OILS. [Concomitant]
     Active Substance: ESSENTIAL OILS
  2. NEXPLANON [Suspect]
     Active Substance: ETONOGESTREL
     Dates: start: 20170228, end: 20170814

REACTIONS (15)
  - Chest pain [None]
  - Eye disorder [None]
  - Haemorrhage [None]
  - Headache [None]
  - Dyspnoea [None]
  - Hypoaesthesia [None]
  - Pain [None]
  - Suicidal ideation [None]
  - Mood swings [None]
  - Weight fluctuation [None]
  - Insomnia [None]
  - Panic attack [None]
  - Acne [None]
  - Muscle twitching [None]
  - Asthenia [None]

NARRATIVE: CASE EVENT DATE: 20170805
